FAERS Safety Report 21732664 (Version 1)
Quarter: 2022Q4

REPORT INFORMATION
  Report Type: Spontaneous
  Country: ES (occurrence: ES)
  Receive Date: 20221215
  Receipt Date: 20221215
  Transmission Date: 20230112
  Serious: Yes (Death, Other)
  Sender: FDA-Public Use
  Company Number: None

PATIENT
  Age: 86 Year
  Sex: Female

DRUGS (7)
  1. METHOTREXATE [Suspect]
     Active Substance: METHOTREXATE
     Indication: Rheumatoid arthritis
     Dates: start: 2021, end: 2022
  2. DEFLAZACORT [Suspect]
     Active Substance: DEFLAZACORT
     Indication: Product used for unknown indication
     Dosage: 3 MG/24 H, STRENGTH- 6 MG, 20 TABLETS
     Dates: start: 20161228
  3. FOLIC ACID [Suspect]
     Active Substance: FOLIC ACID
     Indication: Product used for unknown indication
     Dosage: 2/7 DAYS, STRENGTH- 5 MG, 100 TABLETS
     Dates: start: 20101220
  4. CLORAZEPATE DIPOTASSIUM [Suspect]
     Active Substance: CLORAZEPATE DIPOTASSIUM
     Indication: Product used for unknown indication
     Dosage: 1/24 H, STRENGTH- 5 MG, 30 CAPSULES
     Dates: start: 20080410
  5. CHOLESTYRAMINE [Suspect]
     Active Substance: CHOLESTYRAMINE
     Indication: Product used for unknown indication
     Dosage: 1/24 H, STRENGTH- 4 G, 50 SACHETS
     Dates: start: 20100120
  6. METHOTREXATE SODIUM [Suspect]
     Active Substance: METHOTREXATE SODIUM
     Indication: Product used for unknown indication
     Dosage: 1/7 DAYS, STRENGTH- 10 MG/ 0.20 ML, 1 PRE-FILLED SYRINGE OF 0.2 ML
     Dates: start: 20161223
  7. AMLODIPINE\VALSARTAN [Suspect]
     Active Substance: AMLODIPINE\VALSARTAN
     Indication: Hypertension
     Dosage: 1/24 H, STRENGTH- 5 MG/160 MG, 28 TABLETS
     Dates: start: 20220126

REACTIONS (1)
  - Pancytopenia [Fatal]

NARRATIVE: CASE EVENT DATE: 20220130
